FAERS Safety Report 20583558 (Version 1)
Quarter: 2022Q1

REPORT INFORMATION
  Report Type: Spontaneous
  Country: GB (occurrence: None)
  Receive Date: 20220311
  Receipt Date: 20220311
  Transmission Date: 20220424
  Serious: Yes (Hospitalization)
  Sender: FDA-Public Use
  Company Number: 2022A100271

PATIENT
  Age: 78 Year
  Sex: Male
  Weight: 87 kg

DRUGS (1)
  1. DAPAGLIFLOZIN [Suspect]
     Active Substance: DAPAGLIFLOZIN
     Indication: Cardiac failure
     Dosage: 10MG ONCE A DAY; ;
     Route: 048

REACTIONS (1)
  - Gangrene [Not Recovered/Not Resolved]
